FAERS Safety Report 11012652 (Version 1)
Quarter: 2015Q2

REPORT INFORMATION
  Report Type: Spontaneous
  Country: US (occurrence: None)
  Receive Date: 20150409
  Receipt Date: 20150409
  Transmission Date: 20150821
  Serious: Yes (Death, Other)
  Sender: FDA-Public Use
  Company Number: EU-BP-US-2015-015

PATIENT
  Age: 2 Year
  Sex: Male

DRUGS (1)
  1. BUPRENORPHINE HYDROCHLORIDE. [Suspect]
     Active Substance: BUPRENORPHINE HYDROCHLORIDE
     Indication: PRODUCT USED FOR UNKNOWN INDICATION

REACTIONS (5)
  - Cardio-respiratory arrest [None]
  - Toxicity to various agents [None]
  - Hypoxic-ischaemic encephalopathy [None]
  - Diarrhoea [None]
  - Unresponsive to stimuli [None]

NARRATIVE: CASE EVENT DATE: 20140730
